FAERS Safety Report 6418994-1 (Version None)
Quarter: 2009Q4

REPORT INFORMATION
  Report Type: 
  Country: None (occurrence: None)
  Receive Date: 20091028
  Receipt Date: 20091028
  Transmission Date: 20100525
  Serious: No
  Sender: FDA-Public Use
  Company Number: None

PATIENT

DRUGS (1)
  1. VENLAFAXINE [Suspect]
     Dosage: 225 MG EVERY DAY PO
     Route: 048
     Dates: start: 20090924, end: 20090926

REACTIONS (2)
  - NAUSEA [None]
  - VOMITING [None]
